FAERS Safety Report 10301760 (Version 3)
Quarter: 2014Q4

REPORT INFORMATION
  Report Type: Spontaneous
  Country: US (occurrence: US)
  Receive Date: 20140714
  Receipt Date: 20141120
  Transmission Date: 20150528
  Serious: No
  Sender: FDA-Public Use
  Company Number: US-PFIZER INC-2014192058

PATIENT
  Age: 70 Year
  Sex: Female
  Weight: 63.5 kg

DRUGS (2)
  1. PREMARIN [Suspect]
     Active Substance: ESTROGENS, CONJUGATED
     Indication: VULVOVAGINAL DRYNESS
     Dosage: UNK (INSERT HS FOR 7 NIGHTS THEN AS DIRECTED)
     Route: 067
     Dates: start: 20130604
  2. PREMARIN [Suspect]
     Active Substance: ESTROGENS, CONJUGATED
     Indication: ATROPHIC VULVOVAGINITIS
     Dosage: DOSE INCREASED
     Route: 067
     Dates: end: 20130719

REACTIONS (3)
  - Drug hypersensitivity [Unknown]
  - Vulvovaginal burning sensation [Recovered/Resolved]
  - Vaginal inflammation [Unknown]

NARRATIVE: CASE EVENT DATE: 20130620
